FAERS Safety Report 6055335-6 (Version None)
Quarter: 2009Q1

REPORT INFORMATION
  Report Type: 
  Country: None (occurrence: None)
  Receive Date: 20090122
  Receipt Date: 20090109
  Transmission Date: 20090719
  Serious: Yes (Other)
  Sender: FDA-Public Use
  Company Number: FABR-1000532

PATIENT
  Age: 33 Year
  Sex: Male

DRUGS (4)
  1. FABRAZYME [Suspect]
     Indication: FABRY'S DISEASE
     Dosage: 70 MG, Q2W, INTRAVENOUS
     Route: 042
     Dates: start: 20080401
  2. ACETAMINOPHEN [Concomitant]
  3. BENADRYL [Concomitant]
  4. PLAVIX [Concomitant]

REACTIONS (5)
  - ARTHRALGIA [None]
  - BACK PAIN [None]
  - BLINDNESS TRANSIENT [None]
  - DIPLOPIA [None]
  - PAIN IN EXTREMITY [None]
